FAERS Safety Report 7521736-X (Version None)
Quarter: 2011Q2

REPORT INFORMATION
  Report Type: 
  Country: None (occurrence: None)
  Receive Date: 20110524
  Receipt Date: 20110517
  Transmission Date: 20111010
  Serious: Yes (Hospitalization, Other)
  Sender: FDA-Public Use
  Company Number: 2010SP019265

PATIENT
  Age: 51 Year
  Sex: Female
  Weight: 104.7809 kg

DRUGS (6)
  1. BENADRYL [Concomitant]
  2. DIGESTIVE ENZYMES [Concomitant]
  3. NUVARING [Suspect]
     Dosage: VAG
     Route: 067
     Dates: start: 20060101, end: 20080401
  4. NUVARING [Suspect]
     Dosage: VAG
     Route: 067
     Dates: start: 20030101, end: 20030101
  5. PRILOSEC [Concomitant]
  6. ONE-A-DAY MULTIVITAMINS (MULTIVITAMINS) [Concomitant]

REACTIONS (15)
  - MENOMETRORRHAGIA [None]
  - HIATUS HERNIA [None]
  - ABDOMINAL PAIN [None]
  - OVARIAN CYST [None]
  - GAIT DISTURBANCE [None]
  - GASTRITIS [None]
  - OESOPHAGITIS [None]
  - CHOLECYSTECTOMY [None]
  - HAEMORRHOIDS [None]
  - THROMBOPHLEBITIS SUPERFICIAL [None]
  - DIVERTICULUM [None]
  - SINUS TACHYCARDIA [None]
  - UPPER GASTROINTESTINAL HAEMORRHAGE [None]
  - DEEP VEIN THROMBOSIS [None]
  - INTERNATIONAL NORMALISED RATIO INCREASED [None]
